FAERS Safety Report 8224164-7 (Version None)
Quarter: 2012Q1

REPORT INFORMATION
  Report Type: 
  Country: None (occurrence: None)
  Receive Date: 20120321
  Receipt Date: 20120309
  Transmission Date: 20120608
  Serious: Yes (Hospitalization)
  Sender: FDA-Public Use
  Company Number: FR-SANOFI-AVENTIS-2012SA015945

PATIENT
  Age: 5 Year
  Sex: Male
  Weight: 20.2 kg

DRUGS (6)
  1. TEGRETOL [Suspect]
     Route: 048
     Dates: start: 20111211, end: 20111229
  2. CLAFORAN [Suspect]
     Route: 042
     Dates: start: 20111209, end: 20111229
  3. NCOMYCIN FOR CEREBRAL ABSCESS AND [Concomitant]
     Dates: start: 20111224, end: 20111230
  4. RIFADIN [Concomitant]
     Dates: start: 20111229
  5. NCOMYCIN FOR CEREBRAL ABSCESS AND [Concomitant]
     Dates: start: 20111209, end: 20111213
  6. FLAGYL [Concomitant]
     Dates: start: 20111209

REACTIONS (3)
  - AGRANULOCYTOSIS [None]
  - LYMPHOPENIA [None]
  - THROMBOCYTOPENIA [None]
